APPROVED DRUG PRODUCT: VENLAFAXINE HYDROCHLORIDE
Active Ingredient: VENLAFAXINE HYDROCHLORIDE
Strength: EQ 150MG BASE
Dosage Form/Route: CAPSULE, EXTENDED RELEASE;ORAL
Application: A204889 | Product #003 | TE Code: AB
Applicant: MACLEODS PHARMACEUTICALS LTD
Approved: Oct 5, 2017 | RLD: No | RS: No | Type: RX